FAERS Safety Report 7931612-6 (Version None)
Quarter: 2011Q4

REPORT INFORMATION
  Report Type: 
  Country: None (occurrence: None)
  Receive Date: 20111121
  Receipt Date: 20111108
  Transmission Date: 20120403
  Serious: Yes (Other)
  Sender: FDA-Public Use
  Company Number: PHEH2011US06789

PATIENT
  Sex: Female

DRUGS (3)
  1. LEVETIRACETAM [Concomitant]
     Dosage: UNK UKN, UNK
  2. ATENOLOL [Concomitant]
     Dosage: UNK UKN, UNK
  3. CARBAMAZEPINE [Suspect]
     Indication: CONVULSION
     Dosage: 200 MG, QID
     Route: 048

REACTIONS (1)
  - GRAND MAL CONVULSION [None]
